FAERS Safety Report 5344418-1 (Version None)
Quarter: 2007Q2

REPORT INFORMATION
  Report Type: 
  Country: None (occurrence: None)
  Receive Date: 20070604
  Receipt Date: 20070530
  Transmission Date: 20071010
  Serious: Yes (Other)
  Sender: FDA-Public Use
  Company Number: US-BOEHRINGER INGELHEIM PHARMACEUTICALS, INC.-2007-BP-07349BP

PATIENT
  Sex: Male

DRUGS (1)
  1. FLOMAX [Suspect]
     Route: 048

REACTIONS (3)
  - FALL [None]
  - ORTHOSTATIC HYPOTENSION [None]
  - SKELETAL INJURY [None]
